FAERS Safety Report 16114971 (Version 1)
Quarter: 2019Q1

REPORT INFORMATION
  Report Type: Spontaneous
  Country: FR (occurrence: FR)
  Receive Date: 20190325
  Receipt Date: 20190325
  Transmission Date: 20190418
  Serious: Yes (Hospitalization)
  Sender: FDA-Public Use
  Company Number: FR-ROCHE-2286187

PATIENT
  Age: 58 Year
  Sex: Male
  Weight: 78 kg

DRUGS (3)
  1. SERESTA [Suspect]
     Active Substance: OXAZEPAM
     Indication: DEPRESSION
     Route: 048
     Dates: start: 20190219, end: 20190227
  2. VALIUM [Suspect]
     Active Substance: DIAZEPAM
     Indication: EPILEPSY
     Route: 042
     Dates: start: 20190222
  3. HYPNOVEL (FRANCE) [Concomitant]
     Active Substance: MIDAZOLAM HYDROCHLORIDE
     Indication: SEDATION
     Route: 042
     Dates: start: 20190222

REACTIONS (2)
  - Dysphonia [Recovered/Resolved]
  - Face oedema [Recovered/Resolved]

NARRATIVE: CASE EVENT DATE: 20190221
